FAERS Safety Report 20780030 (Version 1)
Quarter: 2022Q2

REPORT INFORMATION
  Report Type: Spontaneous
  Country: None (occurrence: US)
  Receive Date: 20220503
  Receipt Date: 20220503
  Transmission Date: 20220720
  Serious: No
  Sender: FDA-Public Use
  Company Number: US-GREER Laboratories, Inc.-2128432

PATIENT
  Age: 63 Year
  Sex: Male

DRUGS (21)
  1. QUERCUS MACROCARPA POLLEN [Suspect]
     Active Substance: QUERCUS MACROCARPA POLLEN
     Indication: Seasonal allergy
     Route: 058
     Dates: start: 202104
  2. FRAXINUS LATIFOLIA POLLEN [Suspect]
     Active Substance: FRAXINUS LATIFOLIA POLLEN
     Route: 058
     Dates: start: 202104
  3. ALNUS RHOMBIFOLIA POLLEN [Suspect]
     Active Substance: ALNUS RHOMBIFOLIA POLLEN
     Route: 058
     Dates: start: 202104
  4. ALNUS RHOMBIFOLIA POLLEN [Suspect]
     Active Substance: ALNUS RHOMBIFOLIA POLLEN
     Route: 058
     Dates: start: 202104
  5. ALNUS RHOMBIFOLIA POLLEN [Suspect]
     Active Substance: ALNUS RHOMBIFOLIA POLLEN
     Route: 058
     Dates: start: 202104
  6. ALLENROLFEA OCCIDENTALIS POLLEN [Suspect]
     Active Substance: ALLENROLFEA OCCIDENTALIS POLLEN
     Route: 058
     Dates: start: 202104
  7. BETULA OCCIDENTALIS POLLEN [Suspect]
     Active Substance: BETULA OCCIDENTALIS POLLEN
     Route: 058
     Dates: start: 202104
  8. POLLENS - GRASSES, BAHIA GRASS PASPALUM NOTATUM [Suspect]
     Active Substance: PASPALUM NOTATUM POLLEN
     Route: 058
     Dates: start: 202104
  9. POLLENS - WEEDS AND GARDEN PLANTS, PIGWEED, ROUGH REDROOT AMARANTHUS R [Suspect]
     Active Substance: AMARANTHUS RETROFLEXUS POLLEN
     Route: 058
     Dates: start: 202104
  10. MERIONES UNGUICULATUS SKIN [Suspect]
     Active Substance: MERIONES UNGUICULATUS SKIN
     Route: 058
     Dates: start: 202104
  11. CAVIA PORCELLUS SKIN [Suspect]
     Active Substance: CAVIA PORCELLUS SKIN
     Route: 058
     Dates: start: 202104
  12. RHODOTORULA MUCILAGINOSA [Suspect]
     Active Substance: RHODOTORULA MUCILAGINOSA
     Route: 058
     Dates: start: 202104
  13. TARAXACUM OFFICINALE POLLEN [Suspect]
     Active Substance: TARAXACUM OFFICINALE POLLEN
     Route: 058
     Dates: start: 202104
  14. TRICHOPHYTON MENTAGROPHYTES [Suspect]
     Active Substance: TRICHOPHYTON MENTAGROPHYTES
     Route: 058
     Dates: start: 202104
  15. MOLDS, RUSTS AND SMUTS, BOTRYTIS CINEREA [Suspect]
     Active Substance: BOTRYTIS CINEREA
     Route: 058
     Dates: start: 202104
  16. POLLENS - WEEDS AND GARDEN PLANTS, COCKLEBUR XANTHIUM STRUMARIUM [Suspect]
     Active Substance: XANTHIUM STRUMARIUM POLLEN
     Route: 058
     Dates: start: 202104
  17. GRASS SMUT MIX [Suspect]
     Active Substance: SPORISORIUM CRUENTUM\USTILAGO CYNODONTIS
     Route: 058
     Dates: start: 202104
  18. PLEOSPORA BETAE [Suspect]
     Active Substance: PLEOSPORA BETAE
     Route: 058
     Dates: start: 202104
  19. MOLDS, RUSTS AND SMUTS, CANDIDA ALBICANS [Suspect]
     Active Substance: CANDIDA ALBICANS
     Route: 058
     Dates: start: 202104
  20. MUS MUSCULUS SKIN [Suspect]
     Active Substance: MUS MUSCULUS SKIN
     Route: 058
     Dates: start: 202104
  21. MESOCRICETUS AURATUS SKIN [Suspect]
     Active Substance: MESOCRICETUS AURATUS SKIN
     Route: 058
     Dates: start: 202104

REACTIONS (2)
  - Injection site reaction [Recovering/Resolving]
  - Injection site pain [Recovering/Resolving]

NARRATIVE: CASE EVENT DATE: 20211101
